FAERS Safety Report 5060548-6 (Version None)
Quarter: 2006Q3

REPORT INFORMATION
  Report Type: 
  Country: None (occurrence: None)
  Receive Date: 20060720
  Receipt Date: 20060720
  Transmission Date: 20061208
  Serious: Yes (Hospitalization)
  Sender: FDA-Public Use
  Company Number: None

PATIENT
  Age: 79 Year
  Sex: Male
  Weight: 72.3 kg

DRUGS (12)
  1. HYDROMORPHONE HCL [Suspect]
     Indication: PAIN
     Dosage: ? DOSE INCREASED BY FAMILY
  2. RANITIDINE HCL [Concomitant]
  3. DIPHENHYDRAMINE HCL [Concomitant]
  4. NOVASOURCE 2.0 [Concomitant]
  5. LACTULOSE [Concomitant]
  6. ASPIRIN / DIPYRIDAMOLE [Concomitant]
  7. SENNOSIDES [Concomitant]
  8. PHOSPHATES ENEMA [Concomitant]
  9. SERTRALINE HCL [Concomitant]
  10. FOOD THICKENER [Concomitant]
  11. GENTAMICIN SULFATE [Concomitant]
  12. MUPIROCIN [Concomitant]

REACTIONS (1)
  - ANGIONEUROTIC OEDEMA [None]
